FAERS Safety Report 7071015-2 (Version None)
Quarter: 2010Q4

REPORT INFORMATION
  Report Type: 
  Country: None (occurrence: None)
  Receive Date: 20101027
  Receipt Date: 20101027
  Transmission Date: 20110411
  Serious: Yes (Other)
  Sender: FDA-Public Use
  Company Number: None

PATIENT
  Sex: Male
  Weight: 82.5547 kg

DRUGS (2)
  1. OXYCONTIN [Suspect]
     Indication: PERIPHERAL NERVE LESION
     Dates: start: 20100823, end: 20101025
  2. OXYCONTIN [Suspect]
     Indication: SYRINGOMYELIA
     Dates: start: 20100823, end: 20101025

REACTIONS (6)
  - ABDOMINAL PAIN UPPER [None]
  - DRUG INEFFECTIVE [None]
  - EAR PAIN [None]
  - INSOMNIA [None]
  - PRODUCT FORMULATION ISSUE [None]
  - VISION BLURRED [None]
